FAERS Safety Report 5023853-5 (Version None)
Quarter: 2006Q2

REPORT INFORMATION
  Report Type: 
  Country: None (occurrence: None)
  Receive Date: 20060606
  Receipt Date: 20060523
  Transmission Date: 20061013
  Serious: Yes (Hospitalization, Other)
  Sender: FDA-Public Use
  Company Number: US_0502111929

PATIENT
  Age: 28 Year
  Sex: Female
  Weight: 108.8633 kg

DRUGS (3)
  1. ZYPREXA [Suspect]
     Indication: SCHIZOPHRENIA
     Dates: start: 19990101
  2. GLYBURIDE [Concomitant]
  3. INSULIN [Concomitant]

REACTIONS (11)
  - ALOPECIA [None]
  - ARTHRALGIA [None]
  - DIABETES MELLITUS [None]
  - DIABETIC COMA [None]
  - DIABETIC KETOACIDOSIS [None]
  - FUNGAL INFECTION [None]
  - HYPERGLYCAEMIA [None]
  - HYPERTENSION [None]
  - PNEUMONIA [None]
  - TARDIVE DYSKINESIA [None]
  - WEIGHT INCREASED [None]
